FAERS Safety Report 20050534 (Version 2)
Quarter: 2021Q4

REPORT INFORMATION
  Report Type: Report from Study
  Country: JP (occurrence: JP)
  Receive Date: 20211109
  Receipt Date: 20211118
  Transmission Date: 20220303
  Serious: Yes (Death, Hospitalization)
  Sender: FDA-Public Use
  Company Number: JP-SA-2021SA369026

PATIENT
  Age: 60 Year
  Sex: Female
  Weight: 46 kg

DRUGS (7)
  1. SARILUMAB [Suspect]
     Active Substance: SARILUMAB
     Indication: Rheumatoid arthritis
     Dosage: 200 MG, QOW
     Route: 058
     Dates: start: 20201104
  2. METHOTREXATE [Suspect]
     Active Substance: METHOTREXATE
     Indication: Rheumatoid arthritis
     Dosage: 8 MG, QW
     Route: 048
     Dates: start: 20110613, end: 20210908
  3. METHOTREXATE [Suspect]
     Active Substance: METHOTREXATE
     Dosage: 6 MG, QW
     Route: 048
     Dates: start: 20041112, end: 20110612
  4. METHOTREXATE [Suspect]
     Active Substance: METHOTREXATE
     Dosage: 4 MG, QW
     Route: 048
     Dates: start: 20210908, end: 2021
  5. FOLIC ACID [Concomitant]
     Active Substance: FOLIC ACID
     Indication: Prophylaxis
     Dosage: 5 MG, QW
     Route: 048
     Dates: start: 20041112
  6. FEXOFENADINE HYDROCHLORIDE [Concomitant]
     Active Substance: FEXOFENADINE HYDROCHLORIDE
     Indication: Allergy prophylaxis
     Dosage: 120 MG/DAY (BID) (3 DAYS BEFORE AND AFTER SARILUMAB ADMINISTRATION [THE DAY BEFORE ADMINISTRATION, T
     Route: 048
     Dates: start: 20210623, end: 2021
  7. IGURATIMOD [Concomitant]
     Active Substance: IGURATIMOD
     Indication: Rheumatoid arthritis
     Dosage: 25 MG, BID
     Route: 048
     Dates: start: 20160720

REACTIONS (7)
  - Pneumonia necrotising [Fatal]
  - Haemorrhagic pneumonia [Fatal]
  - Respiratory failure [Fatal]
  - Haemoptysis [Fatal]
  - Chest pain [Fatal]
  - Pleurisy [Unknown]
  - Platelet count decreased [Unknown]

NARRATIVE: CASE EVENT DATE: 20210908
